FAERS Safety Report 19382422 (Version 1)
Quarter: 2021Q2

REPORT INFORMATION
  Report Type: Spontaneous
  Country: US (occurrence: US)
  Receive Date: 20210607
  Receipt Date: 20210607
  Transmission Date: 20210717
  Serious: No
  Sender: FDA-Public Use
  Company Number: NVSC2021US120949

PATIENT
  Sex: Male

DRUGS (1)
  1. PIQRAY [Suspect]
     Active Substance: ALPELISIB
     Indication: PROSTATE CANCER
     Dosage: 300 MG, QD
     Route: 048

REACTIONS (2)
  - Hyperglycaemia [Unknown]
  - Off label use [Unknown]
